FAERS Safety Report 15597099 (Version 11)
Quarter: 2020Q1

REPORT INFORMATION
  Report Type: Report from Study
  Country: DE (occurrence: DE)
  Receive Date: 20181108
  Receipt Date: 20200314
  Transmission Date: 20200409
  Serious: Yes (Other)
  Sender: FDA-Public Use
  Company Number: DE-ROCHE-2139812

PATIENT
  Age: 38 Year
  Sex: Female

DRUGS (9)
  1. DEKRISTOL [Concomitant]
     Active Substance: CHOLECALCIFEROL
     Route: 065
  2. OCREVUS [Suspect]
     Active Substance: OCRELIZUMAB
     Route: 042
     Dates: start: 20190205
  3. NOVAMINSULFON [Concomitant]
     Active Substance: METAMIZOLE
  4. KYLEENA [Concomitant]
     Active Substance: LEVONORGESTREL
     Route: 065
  5. OCREVUS [Suspect]
     Active Substance: OCRELIZUMAB
     Route: 042
     Dates: start: 20180612
  6. LYRICA [Concomitant]
     Active Substance: PREGABALIN
  7. OCREVUS [Suspect]
     Active Substance: OCRELIZUMAB
     Indication: RELAPSING-REMITTING MULTIPLE SCLEROSIS
     Route: 042
     Dates: start: 20180529, end: 20180529
  8. OCREVUS [Suspect]
     Active Substance: OCRELIZUMAB
     Route: 042
     Dates: start: 20190827
  9. ASPIRIN [ACETYLSALICYLIC ACID] [Concomitant]
     Active Substance: ASPIRIN
     Route: 065

REACTIONS (9)
  - Multiple sclerosis relapse [Unknown]
  - Paraesthesia [Not Recovered/Not Resolved]
  - Fatigue [Recovered/Resolved]
  - Balance disorder [Recovered/Resolved]
  - Ligament rupture [Recovered/Resolved]
  - Nausea [Recovered/Resolved]
  - Headache [Recovered/Resolved]
  - Blood pressure decreased [Recovered/Resolved]
  - Back pain [Not Recovered/Not Resolved]

NARRATIVE: CASE EVENT DATE: 20180529
